FAERS Safety Report 26056922 (Version 1)
Quarter: 2025Q4

REPORT INFORMATION
  Report Type: Spontaneous
  Country: GB (occurrence: GB)
  Receive Date: 20251118
  Receipt Date: 20251118
  Transmission Date: 20260118
  Serious: Yes (Other)
  Sender: AUROBINDO
  Company Number: GB-MHRA-MED-202511070622460550-NSHJC

PATIENT
  Age: 28 Year
  Sex: Female

DRUGS (2)
  1. MIRTAZAPINE [Suspect]
     Active Substance: MIRTAZAPINE
     Indication: Adverse drug reaction
     Dosage: 15 MILLIGRAM, ONCE A DAY (15MG ONCE AT NIGHT)
     Route: 065
  2. LANSOPRAZOLE [Concomitant]
     Active Substance: LANSOPRAZOLE
     Indication: Gastrooesophageal reflux disease
     Dosage: UNK
     Route: 065

REACTIONS (6)
  - Dizziness [Recovered/Resolved]
  - Confusional state [Recovered/Resolved]
  - Vision blurred [Recovered/Resolved]
  - Irritability [Recovered/Resolved]
  - Cognitive disorder [Recovered/Resolved]
  - Presyncope [Recovered/Resolved]
